FAERS Safety Report 7524756-4 (Version None)
Quarter: 2011Q2

REPORT INFORMATION
  Report Type: 
  Country: None (occurrence: None)
  Receive Date: 20110606
  Receipt Date: 20110518
  Transmission Date: 20111010
  Serious: Yes (Other)
  Sender: FDA-Public Use
  Company Number: US-BAYER-201016846NA

PATIENT
  Age: 21 Year
  Sex: Female
  Weight: 78.912 kg

DRUGS (5)
  1. YAZ [Suspect]
     Indication: ORAL CONTRACEPTION
     Dosage: 1 DF, QD
     Route: 048
     Dates: start: 20070924, end: 20090616
  2. PROZAC [Concomitant]
     Dosage: 20 MG, UNK
     Route: 048
  3. ANTIBIOTICS [Concomitant]
     Dosage: UNK
     Dates: start: 20080701
  4. DIFLUCAN [Concomitant]
     Dosage: 200 MG, UNK
     Route: 048
  5. YASMIN [Suspect]
     Indication: PRODUCT USED FOR UNKNOWN INDICATION
     Route: 048

REACTIONS (3)
  - CHOLELITHIASIS [None]
  - GALLBLADDER DISORDER [None]
  - CHOLECYSTITIS [None]
